FAERS Safety Report 10299373 (Version 1)
Quarter: 2014Q3

REPORT INFORMATION
  Report Type: Spontaneous
  Country: JP (occurrence: JP)
  Receive Date: 20140711
  Receipt Date: 20140711
  Transmission Date: 20150326
  Serious: Yes (Other)
  Sender: FDA-Public Use
  Company Number: PHHY2014JP084267

PATIENT
  Age: 24 Year
  Sex: Female

DRUGS (4)
  1. RITODRINE [Suspect]
     Active Substance: RITODRINE
     Indication: TOCOLYSIS
     Route: 042
  2. ANESTHETICS [Suspect]
     Active Substance: UNSPECIFIED INGREDIENT
  3. BETAMETHASONE [Suspect]
     Active Substance: BETAMETHASONE
     Dosage: 12 MG, INJECTED TWICE
     Route: 030
  4. EPHEDRINE [Suspect]
     Active Substance: EPHEDRINE
     Dosage: 8 MG, UNK
     Route: 042

REACTIONS (4)
  - Hypotension [Unknown]
  - Premature delivery [Unknown]
  - Premature rupture of membranes [Unknown]
  - Maternal exposure during pregnancy [Unknown]
